FAERS Safety Report 5005271-9 (Version None)
Quarter: 2006Q2

REPORT INFORMATION
  Report Type: 
  Country: None (occurrence: None)
  Receive Date: 20060518
  Receipt Date: 20060512
  Transmission Date: 20061013
  Serious: Yes (Death, Life-Threatening, Hospitalization, Other)
  Sender: FDA-Public Use
  Company Number: 2006033294

PATIENT
  Age: 35 Year
  Sex: Female
  Weight: 100 kg

DRUGS (17)
  1. FLOLAN [Suspect]
     Indication: PULMONARY HYPERTENSION
     Route: 042
     Dates: start: 20020627
  2. SILDENAFIL CITRATE [Suspect]
     Indication: PULMONARY HYPERTENSION
     Dosage: 20MG PER DAY
     Route: 048
     Dates: start: 20051206
  3. OXYCONTIN [Concomitant]
     Route: 048
     Dates: start: 20040201
  4. OXYCOCET [Concomitant]
     Route: 048
     Dates: start: 20000601
  5. UNSPECIFIED MEDICATIONS [Concomitant]
     Route: 048
     Dates: start: 20050301
  6. SPIRONOLACTONE [Concomitant]
     Route: 048
     Dates: start: 20011201
  7. FUROSEMIDE [Concomitant]
     Route: 048
     Dates: start: 20031001
  8. AMITRIPTYLINE HCL [Concomitant]
     Route: 048
     Dates: start: 20050301
  9. CITALOPRAM HYDROBROMIDE [Concomitant]
     Route: 048
     Dates: start: 20020601
  10. SIMVASTATIN [Concomitant]
     Route: 048
     Dates: start: 20031101
  11. PSYLLIUM [Concomitant]
     Route: 048
     Dates: start: 20050401
  12. DIPHENHYDRAMINE HCL [Concomitant]
     Route: 048
     Dates: start: 20040701
  13. LOPERAMIDE [Concomitant]
     Route: 048
     Dates: start: 20020801
  14. DIMENHYDRINATE [Concomitant]
     Route: 048
     Dates: start: 20040301
  15. FLUORIDE [Concomitant]
     Route: 048
     Dates: start: 20050913
  16. ZOPICLONE [Concomitant]
     Route: 048
     Dates: start: 20051203
  17. CIPROFLOXACIN [Concomitant]
     Route: 048
     Dates: start: 20060227

REACTIONS (13)
  - CEREBRAL HAEMORRHAGE [None]
  - CONTUSION [None]
  - EPHELIDES [None]
  - HAEMATURIA [None]
  - HYPOXIA [None]
  - INTERNATIONAL NORMALISED RATIO INCREASED [None]
  - MALAISE [None]
  - PLATELET COUNT DECREASED [None]
  - PYREXIA [None]
  - RASH MACULAR [None]
  - RENAL FAILURE [None]
  - SEPSIS [None]
  - THROMBOTIC THROMBOCYTOPENIC PURPURA [None]
